FAERS Safety Report 8364736-2 (Version None)
Quarter: 2012Q2

REPORT INFORMATION
  Report Type: 
  Country: None (occurrence: None)
  Receive Date: 20120516
  Receipt Date: 20120502
  Transmission Date: 20120825
  Serious: Yes (Hospitalization)
  Sender: FDA-Public Use
  Company Number: FR-ROCHE-1065196

PATIENT
  Age: 41 Year
  Sex: Female

DRUGS (1)
  1. XELODA [Suspect]
     Indication: RECTAL CANCER

REACTIONS (3)
  - MUCOUS MEMBRANE DISORDER [None]
  - BONE MARROW FAILURE [None]
  - SKIN REACTION [None]
